FAERS Safety Report 7991307-X (Version None)
Quarter: 2011Q4

REPORT INFORMATION
  Report Type: 
  Country: None (occurrence: None)
  Receive Date: 20111215
  Receipt Date: 20111129
  Transmission Date: 20120403
  Serious: Yes (Other)
  Sender: FDA-Public Use
  Company Number: 2011AP002893

PATIENT
  Age: 61 Year
  Sex: Male
  Weight: 105.2 kg

DRUGS (10)
  1. DILTZAC [Suspect]
     Indication: SUPRAVENTRICULAR TACHYCARDIA
     Dosage: 240 MG;QD;
  2. DILTZAC [Suspect]
     Indication: ATRIAL FIBRILLATION
     Dosage: 240 MG;QD;
  3. CITALOPRAM HYDROBROMIDE [Suspect]
     Indication: PRODUCT USED FOR UNKNOWN INDICATION
     Dosage: 10 MG;QD;
  4. EZETIMIBE [Concomitant]
  5. PANTOPRAZOLE [Concomitant]
  6. TESTOSTERONE [Concomitant]
  7. ATENOLOL [Concomitant]
  8. ATORVASTATIN [Suspect]
     Indication: HYPERLIPIDAEMIA
     Dosage: 40 MG;QD;
  9. ASPIRIN [Concomitant]
  10. SIMVASTATIN [Suspect]
     Indication: HYPERLIPIDAEMIA
     Dosage: 80 MG;QD;

REACTIONS (9)
  - MYOCLONUS [None]
  - IRON BINDING CAPACITY TOTAL INCREASED [None]
  - MUSCLE SPASMS [None]
  - EXAGGERATED STARTLE RESPONSE [None]
  - HICCUPS [None]
  - SERUM FERRITIN DECREASED [None]
  - SLEEP APNOEA SYNDROME [None]
  - BLOOD GLUCOSE INCREASED [None]
  - TRANSFERRIN SATURATION DECREASED [None]
